FAERS Safety Report 6998092-9 (Version None)
Quarter: 2010Q3

REPORT INFORMATION
  Report Type: 
  Country: None (occurrence: None)
  Receive Date: 20100920
  Receipt Date: 20070321
  Transmission Date: 20110219
  Serious: Yes (Disabling, Other)
  Sender: FDA-Public Use
  Company Number: US-ASTRAZENECA-2006UW10781

PATIENT
  Age: 35 Year
  Sex: Female
  Weight: 119.7 kg

DRUGS (6)
  1. SEROQUEL [Suspect]
     Dosage: 100 MG 1 TO 2 TABLET AT NIGHT
     Route: 048
     Dates: start: 20020214
  2. SERZONE [Concomitant]
     Dates: start: 20020214
  3. ZYPREXA [Concomitant]
     Dates: start: 20020214
  4. AVANDAMET [Concomitant]
     Dosage: 2MG/500MG TWO TIMES A DAY
     Route: 048
     Dates: start: 20061017
  5. GLUCOPHAGE [Concomitant]
     Route: 048
     Dates: start: 20061017
  6. LIPITOR [Concomitant]
     Route: 048
     Dates: start: 20061017

REACTIONS (3)
  - DIABETES MELLITUS [None]
  - DIABETES MELLITUS INADEQUATE CONTROL [None]
  - TYPE 2 DIABETES MELLITUS [None]
